FAERS Safety Report 11739279 (Version 1)
Quarter: 2015Q4

REPORT INFORMATION
  Report Type: Spontaneous
  Country: GB (occurrence: GB)
  Receive Date: 20151113
  Receipt Date: 20151113
  Transmission Date: 20160304
  Serious: Yes (Other)
  Sender: FDA-Public Use
  Company Number: GB-TEVA-606908ACC

PATIENT
  Age: 81 Year
  Sex: Male
  Weight: 69.85 kg

DRUGS (3)
  1. TIMOPTOL-LA [Concomitant]
     Active Substance: TIMOLOL MALEATE
     Dosage: STOPPED WHEN CHEST PAINS STARTED
  2. TRIMETHOPRIM. [Suspect]
     Active Substance: TRIMETHOPRIM
     Indication: URINARY TRACT INFECTION
     Route: 048
     Dates: start: 20151013, end: 20151019
  3. LATANOPROST. [Concomitant]
     Active Substance: LATANOPROST
     Dosage: STOPPED WHEN CHEST PAINS STARTED

REACTIONS (6)
  - Fatigue [Recovered/Resolved]
  - Flatulence [Recovered/Resolved]
  - Dyspepsia [Not Recovered/Not Resolved]
  - Constipation [Recovered/Resolved]
  - Erythema [Recovered/Resolved]
  - Chest pain [Recovered/Resolved]

NARRATIVE: CASE EVENT DATE: 20151013
